FAERS Safety Report 13867895 (Version 2)
Quarter: 2017Q3

REPORT INFORMATION
  Report Type: Spontaneous
  Country: AR (occurrence: AR)
  Receive Date: 20170814
  Receipt Date: 20170823
  Transmission Date: 20171127
  Serious: No
  Sender: FDA-Public Use
  Company Number: AR-ALLERGAN-1734521US

PATIENT
  Age: 67 Year
  Sex: Female

DRUGS (1)
  1. OZURDEX [Suspect]
     Active Substance: DEXAMETHASONE
     Indication: PRODUCT USED FOR UNKNOWN INDICATION
     Dosage: 0.7 MG, SINGLE
     Route: 031
     Dates: start: 20170726, end: 20170726

REACTIONS (2)
  - Needle issue [Unknown]
  - Complication of device insertion [Unknown]
